FAERS Safety Report 8456139 (Version 2)
Quarter: 2015Q1

REPORT INFORMATION
  Report Type: Report from Study
  Country: US (occurrence: US)
  Receive Date: 20120313
  Receipt Date: 20150331
  Transmission Date: 20150721
  Serious: Yes (Death)
  Sender: FDA-Public Use
  Company Number: US-ROCHE-1047544

PATIENT
  Sex: Female

DRUGS (5)
  1. TAXOTERE [Concomitant]
     Active Substance: DOCETAXEL
  2. 5-FLUOROURACIL [Concomitant]
     Active Substance: FLUOROURACIL
  3. HERCEPTIN [Suspect]
     Active Substance: TRASTUZUMAB
     Indication: METASTATIC GASTRIC CANCER
     Route: 065
  4. LEUCOVORIN [Concomitant]
     Active Substance: LEUCOVORIN
  5. CISPLATIN. [Concomitant]
     Active Substance: CISPLATIN

REACTIONS (1)
  - Death [Fatal]
